FAERS Safety Report 4657401-6 (Version None)
Quarter: 2005Q2

REPORT INFORMATION
  Report Type: 
  Country: None (occurrence: None)
  Receive Date: 20050510
  Receipt Date: 20050426
  Transmission Date: 20051028
  Serious: Yes (Other)
  Sender: FDA-Public Use
  Company Number: DE-JNJFOC-20050406108

PATIENT
  Age: 38 Year
  Sex: Female
  Weight: 80 kg

DRUGS (6)
  1. INFLIXIMAB [Suspect]
     Dosage: 1ST INFUSION.
     Route: 042
  2. METHOTREXATE [Concomitant]
     Route: 030
  3. URBASON [Concomitant]
     Route: 049
  4. SODIUM DICLOFENAC [Concomitant]
     Route: 065
  5. ISOZID [Concomitant]
     Indication: TUBERCULOSIS PROPHYLAXIS
     Route: 049
  6. OMEPRAZOLE [Concomitant]
     Indication: PROPHYLAXIS AGAINST GASTROINTESTINAL ULCER
     Route: 065

REACTIONS (1)
  - SALMONELLA SEPSIS [None]
